FAERS Safety Report 15453325 (Version 2)
Quarter: 2018Q4

REPORT INFORMATION
  Report Type: Spontaneous
  Country: US (occurrence: US)
  Receive Date: 20181001
  Receipt Date: 20181107
  Transmission Date: 20190204
  Serious: Yes (Death, Other)
  Sender: FDA-Public Use
  Company Number: US-CELGENEUS-USA-20180910675

PATIENT
  Age: 73 Year
  Sex: Female

DRUGS (1)
  1. REVLIMID [Suspect]
     Active Substance: LENALIDOMIDE
     Indication: PLASMA CELL MYELOMA
     Dosage: 25 MILLIGRAM
     Route: 048
     Dates: start: 20180320

REACTIONS (2)
  - Cardio-respiratory arrest [Fatal]
  - Small cell lung cancer [Unknown]

NARRATIVE: CASE EVENT DATE: 20180912
